FAERS Safety Report 9174064 (Version 2)
Quarter: 2013Q2

REPORT INFORMATION
  Report Type: Spontaneous
  Country: BE (occurrence: None)
  Receive Date: 20130314
  Receipt Date: 20130410
  Transmission Date: 20140414
  Serious: Yes (Hospitalization)
  Sender: FDA-Public Use
  Company Number: NSR_01061_2013

PATIENT
  Age: 46 Year
  Sex: Female

DRUGS (1)
  1. VENLAFAXINE (VENLAFAXINE) [Suspect]
     Indication: PRODUCT USED FOR UNKNOWN INDICATION
     Dosage: 1X INGESTED 3150 MG IMMEDIATE RELEASE

REACTIONS (14)
  - Overdose [None]
  - Sinus tachycardia [None]
  - Grand mal convulsion [None]
  - Hypotension [None]
  - Oliguria [None]
  - Blood lactic acid increased [None]
  - Left ventricular dysfunction [None]
  - Blood creatine phosphokinase increased [None]
  - Electrocardiogram QRS complex abnormal [None]
  - Loss of consciousness [None]
  - Ejection fraction decreased [None]
  - Blood pressure diastolic increased [None]
  - Cardiac failure acute [None]
  - Cardiotoxicity [None]
